FAERS Safety Report 8009115-2 (Version None)
Quarter: 2011Q4

REPORT INFORMATION
  Report Type: 
  Country: None (occurrence: None)
  Receive Date: 20111227
  Receipt Date: 20111215
  Transmission Date: 20120403
  Serious: Yes (Death, Other)
  Sender: FDA-Public Use
  Company Number: US-CELGENEUS-163-21880-11082905

PATIENT
  Sex: Female

DRUGS (29)
  1. AMBIEN [Concomitant]
     Route: 065
  2. CRESTOR [Concomitant]
     Route: 065
  3. ZOMETA [Concomitant]
     Route: 065
  4. REVLIMID [Suspect]
     Indication: MULTIPLE MYELOMA
     Dosage: 15 MILLIGRAM
     Route: 048
     Dates: start: 20110215, end: 20110719
  5. K-TAB [Concomitant]
     Route: 065
  6. COUMADIN [Concomitant]
     Indication: PULMONARY EMBOLISM
     Dosage: 5 MILLIGRAM
     Route: 065
  7. ARANESP [Concomitant]
     Route: 065
  8. ATIVAN [Concomitant]
     Route: 065
  9. XOPENEX [Concomitant]
     Route: 065
  10. NYSTATIN [Concomitant]
     Route: 065
  11. PROCHLORPERAZINE MALEATE [Concomitant]
     Route: 065
  12. OXYCODONE HCL [Concomitant]
     Route: 065
  13. OXYCONTIN [Concomitant]
     Dosage: 80 MILLIGRAM
     Route: 065
  14. CLARITIN [Concomitant]
     Route: 065
  15. SODIUM CITRATE DIHYDRATE [Concomitant]
     Route: 065
  16. SENNA [Concomitant]
     Indication: CONSTIPATION
     Route: 065
  17. VELCADE [Concomitant]
     Route: 065
     Dates: start: 20110120
  18. VITAMIN K TAB [Concomitant]
     Route: 065
  19. LOVAZA [Concomitant]
     Route: 065
  20. VESICARE [Concomitant]
     Route: 065
  21. KLONOPIN [Concomitant]
     Route: 065
  22. ALBUTEROL [Concomitant]
     Route: 065
  23. TOPAMAX [Concomitant]
     Route: 065
  24. ZOLOFT [Concomitant]
     Route: 065
  25. NEXIUM [Concomitant]
     Route: 065
  26. LEVAQUIN [Concomitant]
     Route: 065
  27. DECADRON [Concomitant]
     Dosage: 40 MILLIGRAM
     Route: 065
     Dates: start: 20110120
  28. ACETAMINOPHEN [Concomitant]
     Route: 065
  29. CALCIUM 500 +D [Concomitant]
     Route: 065

REACTIONS (4)
  - PANCYTOPENIA [None]
  - MULTIPLE MYELOMA [None]
  - DISEASE PROGRESSION [None]
  - NO THERAPEUTIC RESPONSE [None]
